FAERS Safety Report 8521653-2 (Version None)
Quarter: 2012Q3

REPORT INFORMATION
  Report Type: 
  Country: None (occurrence: None)
  Receive Date: 20120719
  Receipt Date: 20120717
  Transmission Date: 20120928
  Serious: Yes (Other)
  Sender: FDA-Public Use
  Company Number: PHHY2012AR061476

PATIENT
  Sex: Female

DRUGS (2)
  1. TRILEPTAL [Suspect]
     Indication: SYNCOPE
     Dosage: 300 MG, DAILY
     Dates: start: 20070101
  2. TRILEPTAL [Suspect]
     Dosage: 600 MG, UNK
     Dates: start: 20120717

REACTIONS (2)
  - SYNCOPE [None]
  - BREAST CANCER [None]
